FAERS Safety Report 14812698 (Version 5)
Quarter: 2018Q4

REPORT INFORMATION
  Report Type: Report from Study
  Country: DE (occurrence: DE)
  Receive Date: 20180425
  Receipt Date: 20181003
  Transmission Date: 20190204
  Serious: Yes (Other)
  Sender: FDA-Public Use
  Company Number: DE-ROCHE-2110134

PATIENT
  Age: 8 Year
  Sex: Male

DRUGS (15)
  1. ALEMTUZUMAB [Suspect]
     Active Substance: ALEMTUZUMAB
     Indication: BONE MARROW CONDITIONING REGIMEN
     Dosage: ON DAYS 9 AND 8
     Route: 065
  2. MYCOPHENOLATE MOFETIL. [Suspect]
     Active Substance: MYCOPHENOLATE MOFETIL
     Indication: STEM CELL TRANSPLANT
     Dosage: FROM DAY 5 TO DAY 35
     Route: 048
  3. CYCLOPHOSPHAMIDE. [Suspect]
     Active Substance: CYCLOPHOSPHAMIDE
     Indication: BONE MARROW CONDITIONING REGIMEN
  4. THIOTEPA. [Suspect]
     Active Substance: THIOTEPA
     Dosage: ON DAY 4
     Route: 065
  5. CYCLOPHOSPHAMIDE. [Suspect]
     Active Substance: CYCLOPHOSPHAMIDE
     Indication: STEM CELL TRANSPLANT
     Dosage: ON DAYS 3 AND 2
     Route: 065
  6. CYCLOPHOSPHAMIDE. [Suspect]
     Active Substance: CYCLOPHOSPHAMIDE
     Indication: PROPHYLAXIS AGAINST GRAFT VERSUS HOST DISEASE
     Dosage: ON DAY 3 AND 4
     Route: 065
  7. HYDROXYCARBAMIDE [Concomitant]
     Active Substance: HYDROXYUREA
     Indication: SICKLE CELL DISEASE
     Route: 065
  8. TACROLIMUS. [Suspect]
     Active Substance: TACROLIMUS
     Indication: PROPHYLAXIS AGAINST GRAFT VERSUS HOST DISEASE
     Dosage: FROM DAY 5 UNTIL DAY 100 AIMING AT PLASMA TROUGH LEVELS OF 5-15 NG/ML WITH CONSECUTIVE TAPERING
     Route: 065
  9. TACROLIMUS. [Suspect]
     Active Substance: TACROLIMUS
     Indication: STEM CELL TRANSPLANT
     Dosage: FROM DAY 5 UNTIL DAY 100
     Route: 042
  10. THIOTEPA. [Suspect]
     Active Substance: THIOTEPA
     Indication: BONE MARROW CONDITIONING REGIMEN
     Dosage: ON DAY 4
     Route: 065
  11. TREOSULFAN [Suspect]
     Active Substance: TREOSULFAN
     Indication: BONE MARROW CONDITIONING REGIMEN
     Dosage: 14 G/M2, ONCE DAILY ON DAYS 7 TO 5
     Route: 065
  12. MYCOPHENOLATE MOFETIL. [Suspect]
     Active Substance: MYCOPHENOLATE MOFETIL
     Indication: PROPHYLAXIS AGAINST GRAFT VERSUS HOST DISEASE
  13. TACROLIMUS. [Suspect]
     Active Substance: TACROLIMUS
     Route: 048
  14. FLUDARABINE [Suspect]
     Active Substance: FLUDARABINE PHOSPHATE
     Indication: BONE MARROW CONDITIONING REGIMEN
     Dosage: ON DAYS 7 TO 3
     Route: 065
  15. LEVETIRACETAM. [Concomitant]
     Active Substance: LEVETIRACETAM
     Indication: SEIZURE PROPHYLAXIS
     Route: 065

REACTIONS (4)
  - Product use in unapproved indication [Unknown]
  - Cytomegalovirus infection [Unknown]
  - Off label use [Unknown]
  - Graft versus host disease in skin [Unknown]
